FAERS Safety Report 13442114 (Version 3)
Quarter: 2018Q1

REPORT INFORMATION
  Report Type: Spontaneous
  Country: IT (occurrence: IT)
  Receive Date: 20170413
  Receipt Date: 20180302
  Transmission Date: 20180508
  Serious: Yes (Other)
  Sender: FDA-Public Use
  Company Number: IT-EMD SERONO-8153092

PATIENT
  Age: 44 Year
  Sex: Male

DRUGS (2)
  1. REBIF [Suspect]
     Active Substance: INTERFERON BETA-1A
     Indication: MULTIPLE SCLEROSIS
     Dosage: 44 MICROGRAMS/0.5 ML
     Dates: start: 20120604, end: 20150331
  2. REBIF [Suspect]
     Active Substance: INTERFERON BETA-1A
     Dosage: DOSE REDUCED TO 22 MCG

REACTIONS (5)
  - Influenza like illness [Recovering/Resolving]
  - Anti-thyroid antibody positive [Recovering/Resolving]
  - Leukopenia [Recovering/Resolving]
  - Product dosage form issue [Recovering/Resolving]
  - Multiple sclerosis relapse [Recovering/Resolving]

NARRATIVE: CASE EVENT DATE: 20140201
